FAERS Safety Report 6289973-2 (Version None)
Quarter: 2009Q3

REPORT INFORMATION
  Report Type: 
  Country: None (occurrence: None)
  Receive Date: 20090730
  Receipt Date: 20081009
  Transmission Date: 20100115
  Serious: No
  Sender: FDA-Public Use
  Company Number: US-BRISTOL-MYERS SQUIBB COMPANY-14364137

PATIENT
  Age: 43 Year
  Sex: Female
  Weight: 70 kg

DRUGS (7)
  1. COUMADIN [Suspect]
  2. HECTOROL [Concomitant]
  3. CYMBALTA [Concomitant]
  4. METOPROLOL TARTRATE [Concomitant]
  5. VITAMIN B1 TAB [Concomitant]
  6. ASCORBIC ACID [Concomitant]
  7. ADIPEX [Concomitant]

REACTIONS (1)
  - DIARRHOEA [None]
